FAERS Safety Report 7046533-3 (Version None)
Quarter: 2010Q4

REPORT INFORMATION
  Report Type: 
  Country: None (occurrence: None)
  Receive Date: 20101015
  Receipt Date: 20101004
  Transmission Date: 20110411
  Serious: Yes (Hospitalization)
  Sender: FDA-Public Use
  Company Number: US-BIOGENIDEC-2007BI019820

PATIENT
  Age: 35 Year
  Sex: Male
  Weight: 58 kg

DRUGS (3)
  1. TYSABRI [Suspect]
     Indication: MULTIPLE SCLEROSIS
     Route: 042
     Dates: start: 20070103
  2. EXCEDRIN (MIGRAINE) [Concomitant]
     Indication: PRODUCT USED FOR UNKNOWN INDICATION
  3. PEPCID [Concomitant]
     Indication: ULCER

REACTIONS (4)
  - COLLAPSE OF LUNG [None]
  - DUODENAL OBSTRUCTION [None]
  - DUODENAL ULCER PERFORATION [None]
  - OVERDOSE [None]
